FAERS Safety Report 8454029-7 (Version None)
Quarter: 2012Q2

REPORT INFORMATION
  Report Type: 
  Country: None (occurrence: None)
  Receive Date: 20120620
  Receipt Date: 20120611
  Transmission Date: 20120825
  Serious: Yes (Hospitalization)
  Sender: FDA-Public Use
  Company Number: CA-JNJFOC-20120605452

PATIENT
  Sex: Female
  Weight: 73.94 kg

DRUGS (1)
  1. REMICADE [Suspect]
     Indication: CROHN'S DISEASE
     Route: 042
     Dates: start: 20120512, end: 20120601

REACTIONS (2)
  - INTESTINAL OPERATION [None]
  - DRUG INEFFECTIVE [None]
